FAERS Safety Report 7082232-X (Version None)
Quarter: 2010Q4

REPORT INFORMATION
  Report Type: 
  Country: None (occurrence: None)
  Receive Date: 20101103
  Receipt Date: 20101021
  Transmission Date: 20110411
  Serious: Yes (Other)
  Sender: FDA-Public Use
  Company Number: JP-MYLANLABS-2010S1017861

PATIENT
  Age: 70 Year
  Sex: Female

DRUGS (3)
  1. OMEPRAZOLE [Suspect]
     Indication: REFLUX OESOPHAGITIS
     Route: 048
     Dates: start: 20100101, end: 20100903
  2. MAGMITT [Concomitant]
     Indication: PRODUCT USED FOR UNKNOWN INDICATION
     Route: 048
     Dates: end: 20100101
  3. BIO-THREE [Concomitant]
     Indication: PRODUCT USED FOR UNKNOWN INDICATION
     Route: 048

REACTIONS (5)
  - COMMUNICATION DISORDER [None]
  - CONFUSIONAL STATE [None]
  - CRYING [None]
  - INSOMNIA [None]
  - PAIN [None]
